FAERS Safety Report 5533202-1 (Version None)
Quarter: 2007Q4

REPORT INFORMATION
  Report Type: 
  Country: None (occurrence: None)
  Receive Date: 20071204
  Receipt Date: 20071123
  Transmission Date: 20080405
  Serious: Yes (Other)
  Sender: FDA-Public Use
  Company Number: CH-ASTRAZENECA-2007PK02494

PATIENT
  Age: 44 Year
  Sex: Female

DRUGS (8)
  1. NEXIUM [Suspect]
     Route: 048
     Dates: start: 20070807, end: 20070828
  2. THALIDOMIDE [Suspect]
     Route: 048
     Dates: start: 20070807, end: 20070828
  3. ZYLORIC [Suspect]
     Route: 048
     Dates: start: 20070807, end: 20070828
  4. DEXAMETHASONE [Concomitant]
     Route: 048
     Dates: start: 20070807, end: 20070826
  5. SINTROM [Concomitant]
     Route: 048
     Dates: start: 20070807, end: 20070828
  6. AREDIA [Concomitant]
     Route: 042
     Dates: start: 20070802, end: 20070802
  7. DAFALGAN [Concomitant]
     Route: 048
     Dates: start: 20070801, end: 20070828
  8. BUPRENORPHINE HCL [Concomitant]
     Route: 060
     Dates: start: 20070801

REACTIONS (3)
  - ABDOMINAL PAIN [None]
  - HEPATOCELLULAR DAMAGE [None]
  - NAUSEA [None]
